FAERS Safety Report 9372878 (Version 2)
Quarter: 2013Q3

REPORT INFORMATION
  Report Type: Spontaneous
  Country: US (occurrence: US)
  Receive Date: 20130627
  Receipt Date: 20130827
  Transmission Date: 20140515
  Serious: Yes (Other)
  Sender: FDA-Public Use
  Company Number: PHEH2013US010538

PATIENT
  Sex: Female

DRUGS (8)
  1. VIVELLE DOT [Suspect]
     Dosage: 0.05 MG, UNK
     Route: 062
     Dates: start: 20121127, end: 20130102
  2. VIVELLE DOT [Suspect]
     Dosage: 50 UG, UNK
     Route: 062
     Dates: start: 20130125, end: 201302
  3. VITAMIN C [Concomitant]
     Dosage: UNK UKN, UNK
  4. VITAMIN D [Concomitant]
     Dosage: UNK UKN, UNK
  5. CRANBERRY [Concomitant]
     Dosage: UNK UKN, UNK
  6. VICODIN [Concomitant]
     Dosage: 5 MG/ 300 MG, Q12H
     Dates: start: 20130201
  7. VOLTAREN//DICLOFENAC [Concomitant]
     Dosage: UNK UKN, UNK
  8. NAPROXEN [Concomitant]
     Dosage: UNK UKN, UNK

REACTIONS (7)
  - Arthralgia [Recovering/Resolving]
  - Weight increased [Recovering/Resolving]
  - Asthenia [Unknown]
  - Musculoskeletal stiffness [Unknown]
  - Crying [Unknown]
  - Pain in extremity [Unknown]
  - Overdose [Unknown]
